FAERS Safety Report 24042605 (Version 2)
Quarter: 2025Q4

REPORT INFORMATION
  Report Type: Spontaneous
  Country: US (occurrence: US)
  Receive Date: 20240702
  Receipt Date: 20251002
  Transmission Date: 20260117
  Serious: No
  Sender: INTRA-CELLULAR THERAPIES
  Company Number: US-INTRA-CELLULAR THERAPIES, INC.-2024ICT00979

PATIENT
  Sex: Male
  Weight: 78.471 kg

DRUGS (5)
  1. CAPLYTA [Suspect]
     Active Substance: LUMATEPERONE
     Indication: Bipolar II disorder
     Dosage: 42 MG
     Route: 048
     Dates: start: 2023, end: 2024
  2. CAPLYTA [Suspect]
     Active Substance: LUMATEPERONE
     Indication: Bipolar II disorder
     Dosage: 21 MG, 1X/DAY
     Route: 048
     Dates: start: 2024, end: 2024
  3. CAPLYTA [Suspect]
     Active Substance: LUMATEPERONE
     Indication: Bipolar II disorder
     Dosage: 10.5 MG
     Dates: start: 2024
  4. CAPLYTA [Suspect]
     Active Substance: LUMATEPERONE
     Dosage: 21 MG
  5. CAPLYTA [Suspect]
     Active Substance: LUMATEPERONE
     Dosage: 31 MG

REACTIONS (7)
  - Psychomotor hyperactivity [Not Recovered/Not Resolved]
  - Logorrhoea [Not Recovered/Not Resolved]
  - Soliloquy [Not Recovered/Not Resolved]
  - Negative thoughts [Unknown]
  - Depressed mood [Not Recovered/Not Resolved]
  - Fatigue [Unknown]
  - Unevaluable event [Not Recovered/Not Resolved]

NARRATIVE: CASE EVENT DATE: 20240101
